FAERS Safety Report 17579656 (Version 1)
Quarter: 2020Q1

REPORT INFORMATION
  Report Type: Spontaneous
  Country: US (occurrence: US)
  Receive Date: 20200320
  Receipt Date: 20200320
  Transmission Date: 20200409
  Serious: No
  Sender: FDA-Public Use
  Company Number: None

PATIENT
  Sex: Female

DRUGS (17)
  1. ATORVASTATIN [Concomitant]
     Active Substance: ATORVASTATIN
  2. IBANDRONATE [Concomitant]
     Active Substance: IBANDRONATE SODIUM
  3. FUROSEMIDE. [Concomitant]
     Active Substance: FUROSEMIDE
  4. JANUVIA [Concomitant]
     Active Substance: SITAGLIPTIN PHOSPHATE
  5. LANTUS SOLOS [Concomitant]
  6. PROCRIT [Suspect]
     Active Substance: ERYTHROPOIETIN
     Indication: ANAEMIA OF CHRONIC DISEASE
     Route: 058
     Dates: start: 20190516
  7. PIOGLITAZONE. [Concomitant]
     Active Substance: PIOGLITAZONE
  8. SYNTHROID [Concomitant]
     Active Substance: LEVOTHYROXINE SODIUM
  9. AMLODIPINE [Concomitant]
     Active Substance: AMLODIPINE BESYLATE
  10. METOPROL SUC [Concomitant]
  11. METOPROL TAR [Concomitant]
  12. ASPIRIN. [Concomitant]
     Active Substance: ASPIRIN
  13. IRBESARTAN. [Concomitant]
     Active Substance: IRBESARTAN
  14. LEVOTHYROXIN [Concomitant]
     Active Substance: LEVOTHYROXINE
  15. OLOPATADINE. [Concomitant]
     Active Substance: OLOPATADINE
  16. CHLORHEX GLU [Concomitant]
  17. CHLORTHALID [Concomitant]
     Active Substance: CHLORTHALIDONE

REACTIONS (1)
  - Hospitalisation [None]
